FAERS Safety Report 6756868-7 (Version None)
Quarter: 2010Q2

REPORT INFORMATION
  Report Type: 
  Country: None (occurrence: None)
  Receive Date: 20100604
  Receipt Date: 20100528
  Transmission Date: 20101027
  Serious: Yes (Death, Other)
  Sender: FDA-Public Use
  Company Number: US-SANOFI-AVENTIS-2010SA031561

PATIENT

DRUGS (4)
  1. ELOXATIN [Suspect]
     Indication: COLORECTAL CANCER
     Route: 041
  2. AVASTIN [Suspect]
     Indication: COLORECTAL CANCER
     Route: 042
  3. FOLINIC ACID [Suspect]
     Indication: COLORECTAL CANCER
     Route: 042
  4. FLUOROURACIL [Suspect]
     Indication: COLORECTAL CANCER
     Route: 042

REACTIONS (2)
  - CEREBROVASCULAR ACCIDENT [None]
  - DEATH [None]
